FAERS Safety Report 18538147 (Version 2)
Quarter: 2021Q3

REPORT INFORMATION
  Report Type: Spontaneous
  Country: CA (occurrence: CA)
  Receive Date: 20201124
  Receipt Date: 20210812
  Transmission Date: 20211014
  Serious: Yes (Hospitalization, Other)
  Sender: FDA-Public Use
  Company Number: CA-SAMSUNG BIOEPIS-SB-2020-21459

PATIENT
  Age: 63 Year
  Sex: Female

DRUGS (1)
  1. INFLIXIMAB [Suspect]
     Active Substance: INFLIXIMAB
     Indication: CROHN^S DISEASE
     Route: 042

REACTIONS (13)
  - Heart rate irregular [Not Recovered/Not Resolved]
  - Pyrexia [Not Recovered/Not Resolved]
  - Memory impairment [Not Recovered/Not Resolved]
  - Blood pressure increased [Not Recovered/Not Resolved]
  - Drug level decreased [Not Recovered/Not Resolved]
  - Blood pressure fluctuation [Not Recovered/Not Resolved]
  - Inappropriate schedule of product administration [Not Recovered/Not Resolved]
  - Muscle spasms [Not Recovered/Not Resolved]
  - Off label use [Not Recovered/Not Resolved]
  - Infection [Not Recovered/Not Resolved]
  - Dementia [Not Recovered/Not Resolved]
  - Intentional product use issue [Not Recovered/Not Resolved]
  - Heart rate increased [Not Recovered/Not Resolved]
